FAERS Safety Report 22228999 (Version 1)
Quarter: 2023Q2

REPORT INFORMATION
  Report Type: Spontaneous
  Country: US (occurrence: US)
  Receive Date: 20230419
  Receipt Date: 20230419
  Transmission Date: 20230722
  Serious: No
  Sender: FDA-Public Use
  Company Number: US-IGSA-BIG0023012

PATIENT
  Age: 77 Year
  Sex: Male
  Weight: 82.54 kg

DRUGS (8)
  1. GAMUNEX-C [Suspect]
     Active Substance: HUMAN IMMUNOGLOBULIN G
     Indication: Chronic inflammatory demyelinating polyradiculoneuropathy
     Dosage: UNK UNKNOWN, QD
     Route: 042
     Dates: start: 20230301, end: 20230303
  2. FINASTERIDE [Concomitant]
     Active Substance: FINASTERIDE
     Dosage: 1 MILLIGRAM, QD
     Route: 048
  3. VIAGRA [Concomitant]
     Active Substance: SILDENAFIL CITRATE
     Route: 048
  4. ACYCLOVIR [Concomitant]
     Active Substance: ACYCLOVIR
     Dosage: 200 MILLIGRAM
     Route: 048
  5. VITAMINS NOS [Concomitant]
     Active Substance: VITAMINS
     Dosage: 1 UNK, QD
     Route: 048
  6. FISH OIL [Concomitant]
     Active Substance: FISH OIL
     Dosage: UNK UNK, QD
     Route: 048
  7. VITAMIN D3 [Concomitant]
     Active Substance: CHOLECALCIFEROL
     Dosage: UNK UNK, QD
     Route: 048
  8. TESTOSTERONE [Concomitant]
     Active Substance: TESTOSTERONE
     Dosage: 1400 MILLIGRAM
     Route: 058

REACTIONS (3)
  - Rash [Not Recovered/Not Resolved]
  - Urticaria [Not Recovered/Not Resolved]
  - Pruritus [Not Recovered/Not Resolved]

NARRATIVE: CASE EVENT DATE: 20230316
